FAERS Safety Report 16830993 (Version 2)
Quarter: 2019Q3

REPORT INFORMATION
  Report Type: Report from Study
  Country: US (occurrence: US)
  Receive Date: 20190920
  Receipt Date: 20190925
  Transmission Date: 20191005
  Serious: Yes (Hospitalization, Other)
  Sender: FDA-Public Use
  Company Number: US-GILEAD-2019-0427231

PATIENT
  Age: 75 Year
  Sex: Female
  Weight: 42.18 kg

DRUGS (19)
  1. LIPITOR [Concomitant]
     Active Substance: ATORVASTATIN CALCIUM
  2. ORENITRAM [Concomitant]
     Active Substance: TREPROSTINIL
  3. RALOXIFENE. [Concomitant]
     Active Substance: RALOXIFENE
  4. ASPIRIN. [Concomitant]
     Active Substance: ASPIRIN
  5. ADVAIR HFA [Concomitant]
     Active Substance: FLUTICASONE PROPIONATE\SALMETEROL XINAFOATE
  6. AMBRISENTAN [Suspect]
     Active Substance: AMBRISENTAN
     Indication: PULMONARY ARTERIAL HYPERTENSION
     Dosage: 10 MG, QD
     Route: 065
     Dates: start: 20180426
  7. FISH OIL [Concomitant]
     Active Substance: FISH OIL
  8. VITAMINS NOS [Concomitant]
     Active Substance: VITAMINS
  9. SPIRIVA [Concomitant]
     Active Substance: TIOTROPIUM BROMIDE MONOHYDRATE
  10. CALCIUM CITRATE;VITAMIN D NOS [Concomitant]
  11. GINKGO BILOBA [Concomitant]
     Active Substance: GINKGO
  12. RANITIDINE. [Concomitant]
     Active Substance: RANITIDINE
  13. GARLIC [ALLIUM SATIVUM] [Concomitant]
     Active Substance: GARLIC
  14. GLUCOSAMINE [Concomitant]
     Active Substance: GLUCOSAMINE
  15. SERTRALINE [Concomitant]
     Active Substance: SERTRALINE HYDROCHLORIDE
  16. FLONASE [Concomitant]
     Active Substance: FLUTICASONE PROPIONATE
  17. ADEMPAS [Concomitant]
     Active Substance: RIOCIGUAT
  18. ALEVE [Concomitant]
     Active Substance: NAPROXEN SODIUM
  19. OXYBUTYNIN. [Concomitant]
     Active Substance: OXYBUTYNIN CHLORIDE

REACTIONS (4)
  - Hip fracture [Not Recovered/Not Resolved]
  - Hip surgery [Not Recovered/Not Resolved]
  - Heart rate irregular [Unknown]
  - Heart rate increased [Unknown]

NARRATIVE: CASE EVENT DATE: 20190824
